FAERS Safety Report 22928749 (Version 6)
Quarter: 2024Q1

REPORT INFORMATION
  Report Type: Spontaneous
  Country: FR (occurrence: FR)
  Receive Date: 20230911
  Receipt Date: 20240305
  Transmission Date: 20240409
  Serious: Yes (Hospitalization)
  Sender: FDA-Public Use
  Company Number: None

PATIENT
  Age: 61 Year
  Sex: Male

DRUGS (32)
  1. VALGANCICLOVIR [Suspect]
     Active Substance: VALGANCICLOVIR
     Indication: Antiviral prophylaxis
     Dosage: 450 UNK
     Route: 065
     Dates: start: 202304, end: 20230629
  2. GANCICLOVIR SODIUM [Suspect]
     Active Substance: GANCICLOVIR SODIUM
     Indication: Product used for unknown indication
     Dosage: UNK
     Route: 065
     Dates: start: 20230309, end: 20230313
  3. CELLCEPT [Suspect]
     Active Substance: MYCOPHENOLATE MOFETIL
     Indication: Lung transplant rejection
     Dosage: NR
     Route: 065
     Dates: start: 202304, end: 202306
  4. CELLCEPT [Suspect]
     Active Substance: MYCOPHENOLATE MOFETIL
     Route: 065
     Dates: start: 202306
  5. METHYLPREDNISOLONE [Suspect]
     Active Substance: METHYLPREDNISOLONE
     Indication: Product used for unknown indication
     Route: 065
     Dates: start: 20230309, end: 20230313
  6. PROGRAF [Suspect]
     Active Substance: TACROLIMUS
     Indication: Lung transplant rejection
     Dosage: (3 MG, MORNING AND EVENING)
     Route: 065
  7. PROGRAF [Suspect]
     Active Substance: TACROLIMUS
     Dosage: (2 MG, MORNING AND EVENING)
     Route: 065
  8. PROGRAF [Suspect]
     Active Substance: TACROLIMUS
     Dosage: 4MG 2 TIMES JR
     Route: 065
     Dates: start: 202304
  9. CALCIUM CARBONATE [Suspect]
     Active Substance: CALCIUM CARBONATE
     Indication: Product used for unknown indication
     Dosage: 500MG/400UI: 1 SACHET IN THE MORNING
     Route: 065
  10. CERTICAN [Suspect]
     Active Substance: EVEROLIMUS
     Indication: Lung transplant rejection
     Dosage: 1 MG, MORNING AND EVENING
     Route: 065
  11. CERTICAN [Suspect]
     Active Substance: EVEROLIMUS
     Dosage: 1.5 MG, MORNING AND EVENING
     Route: 065
     Dates: start: 20230415
  12. CERTICAN [Suspect]
     Active Substance: EVEROLIMUS
     Dosage: NR
     Route: 065
     Dates: start: 202304
  13. ELIQUIS [Suspect]
     Active Substance: APIXABAN
     Indication: Product used for unknown indication
     Dosage: (1 DOSAGE FORM IN MORNING AND EVENING)
     Route: 065
  14. CYCLOSPORINE [Suspect]
     Active Substance: CYCLOSPORINE
     Indication: Product used for unknown indication
     Dosage: UNK
     Route: 065
     Dates: start: 20230309, end: 20230313
  15. AMOXICILLIN\CLAVULANATE POTASSIUM [Suspect]
     Active Substance: AMOXICILLIN\CLAVULANATE POTASSIUM
     Indication: Product used for unknown indication
     Dosage: UNK
     Route: 065
     Dates: start: 20230309, end: 20230313
  16. PANTOPRAZOLE [Suspect]
     Active Substance: PANTOPRAZOLE
     Indication: Product used for unknown indication
     Dosage: 20 MG, QD
     Route: 065
  17. MAGNESIUM [Suspect]
     Active Substance: MAGNESIUM
     Indication: Product used for unknown indication
     Dosage: (2 SACHETS IN THE MORNING)
     Route: 065
  18. CRESTOR [Suspect]
     Active Substance: ROSUVASTATIN CALCIUM
     Indication: Product used for unknown indication
     Dosage: (10 MG, QD,IN THE EVENING)
     Route: 065
  19. ZIEXTENZO [Suspect]
     Active Substance: PEGFILGRASTIM-BMEZ
     Indication: Product used for unknown indication
     Dosage: EVERY 6 WEEKS
     Route: 065
     Dates: start: 20230527
  20. OLODATEROL HYDROCHLORIDE\TIOTROPIUM BROMIDE MONOHYDRATE [Suspect]
     Active Substance: OLODATEROL HYDROCHLORIDE\TIOTROPIUM BROMIDE MONOHYDRATE
     Indication: Product used for unknown indication
     Dosage: 2 PUFFS/D
     Route: 065
  21. PREDNISONE [Suspect]
     Active Substance: PREDNISONE
     Indication: Lung transplant rejection
     Dosage: 7.5 MG, QD
     Route: 065
     Dates: start: 202304
  22. PREDNISONE [Suspect]
     Active Substance: PREDNISONE
     Dosage: 10 MG, QD
     Route: 065
     Dates: start: 202304
  23. PREDNISONE [Suspect]
     Active Substance: PREDNISONE
     Dosage: 25 MG, QD
     Route: 065
     Dates: start: 202304
  24. PREDNISONE [Suspect]
     Active Substance: PREDNISONE
     Dosage: 5 MG, QD
     Route: 065
  25. PREDNISONE [Suspect]
     Active Substance: PREDNISONE
     Dosage: 12.5 MG, QD
     Route: 065
     Dates: start: 202304
  26. LEUCOVORIN CALCIUM [Suspect]
     Active Substance: LEUCOVORIN CALCIUM
     Indication: Product used for unknown indication
     Dosage: (5 MG MONDAY, WEDNESDAY, FRIDAY)
     Route: 065
  27. LANSOPRAZOLE [Suspect]
     Active Substance: LANSOPRAZOLE
     Indication: Product used for unknown indication
     Dosage: 1 DOSAGE FORM IN EVENING
     Route: 065
  28. SIMULECT [Suspect]
     Active Substance: BASILIXIMAB
     Indication: Product used for unknown indication
     Dosage: UNK
     Route: 065
     Dates: start: 20230309, end: 20230313
  29. PENTACARINAT [Suspect]
     Active Substance: PENTAMIDINE ISETHIONATE
     Indication: Product used for unknown indication
     Dosage: 300 MG, IN 1 MONTH
     Route: 065
     Dates: start: 20230712
  30. CASPOFUNGIN [Suspect]
     Active Substance: CASPOFUNGIN
     Indication: Product used for unknown indication
     Dosage: UNK
     Route: 065
     Dates: start: 20230309, end: 20230313
  31. SOTALOL HYDROCHLORIDE [Suspect]
     Active Substance: SOTALOL HYDROCHLORIDE
     Indication: Product used for unknown indication
     Dosage: (1/2 TABLET MORNING AND EVENING)
     Route: 065
  32. VITAMIN D3 [Suspect]
     Active Substance: CHOLECALCIFEROL
     Indication: Product used for unknown indication
     Dosage: (500MG/400UI 1 SACHET IN THE MORNING)
     Route: 065

REACTIONS (3)
  - Neutropenia [Recovering/Resolving]
  - Stenotrophomonas infection [Recovered/Resolved]
  - Off label use [Unknown]

NARRATIVE: CASE EVENT DATE: 20230530
